FAERS Safety Report 7763983-8 (Version None)
Quarter: 2011Q3

REPORT INFORMATION
  Report Type: 
  Country: None (occurrence: None)
  Receive Date: 20110916
  Receipt Date: 20110902
  Transmission Date: 20111222
  Serious: Yes (Hospitalization)
  Sender: FDA-Public Use
  Company Number: 2011090063

PATIENT
  Age: 74 Year
  Sex: Male
  Weight: 107 kg

DRUGS (15)
  1. AMOXICILLIN TRIHYDRATE [Concomitant]
  2. MAGNESIOCARD (MAGNESIUM HYDROGEN ASPARTATE) [Concomitant]
  3. SIMVASTATIN-MEPHA (SIMVASTATIN) [Concomitant]
  4. FRAGMIN [Concomitant]
  5. TORSEMIDE [Suspect]
     Indication: MYOCARDIAL ISCHAEMIA
     Dosage: 15 MG (15 MG, 1 IN 1 D),ORAL, 10 MG (10 MG, 1  IN 1 D),ORAL
     Route: 048
     Dates: start: 20110315, end: 20110411
  6. TORSEMIDE [Suspect]
     Indication: MYOCARDIAL ISCHAEMIA
     Dosage: 15 MG (15 MG, 1 IN 1 D),ORAL, 10 MG (10 MG, 1  IN 1 D),ORAL
     Route: 048
     Dates: start: 20110412
  7. ASPIRIN [Concomitant]
  8. ALLOPURINOL [Concomitant]
  9. METOPROLOL SUCCINATE [Concomitant]
  10. LYRICAQ (PREGABALIN) [Concomitant]
  11. GARAMYCIN [Suspect]
     Indication: ACUTE ENDOCARDITIS
     Dosage: 3 00 MG (100 MG,3 IN 1 D),INTRAVENOUS BOLUS
     Route: 040
  12. GARAMYCIN [Suspect]
     Indication: ENDOCARDITIS ENTEROCOCCAL
     Dosage: 3 00 MG (100 MG,3 IN 1 D),INTRAVENOUS BOLUS
     Route: 040
  13. GARAMYCIN [Suspect]
     Indication: SUBACUTE ENDOCARDITIS
     Dosage: 3 00 MG (100 MG,3 IN 1 D),INTRAVENOUS BOLUS
     Route: 040
  14. GARAMYCIN [Suspect]
     Indication: SEPSIS
     Dosage: 3 00 MG (100 MG,3 IN 1 D),INTRAVENOUS BOLUS
     Route: 040
  15. RAMIPRIL [Suspect]
     Indication: ESSENTIAL HYPERTENSION
     Dosage: 10 MG (10 MG,L IN 1 D),ORAL
     Route: 048
     Dates: end: 20110404

REACTIONS (4)
  - RENAL FAILURE CHRONIC [None]
  - DRUG INTERACTION [None]
  - TOXICITY TO VARIOUS AGENTS [None]
  - CONDITION AGGRAVATED [None]
